FAERS Safety Report 18654807 (Version 1)
Quarter: 2020Q4

REPORT INFORMATION
  Report Type: Spontaneous
  Country: FI (occurrence: FI)
  Receive Date: 20201223
  Receipt Date: 20201223
  Transmission Date: 20210114
  Serious: Yes (Hospitalization, Other)
  Sender: FDA-Public Use
  Company Number: FI-PURDUE-USA-2020-0191960

PATIENT
  Age: 86 Year
  Sex: Female
  Weight: 47 kg

DRUGS (3)
  1. IMOVANE [Interacting]
     Active Substance: ZOPICLONE
     Indication: PRODUCT USED FOR UNKNOWN INDICATION
     Dosage: UNK
     Route: 065
  2. OXYNORM [Suspect]
     Active Substance: OXYCODONE HYDROCHLORIDE
     Indication: PRODUCT USED FOR UNKNOWN INDICATION
     Dosage: UNK (10MG/ML)
     Route: 065
  3. TYRAZOL [Concomitant]
     Active Substance: CARBIMAZOLE
     Indication: PRODUCT USED FOR UNKNOWN INDICATION
     Dosage: UNK

REACTIONS (13)
  - Aphasia [Recovering/Resolving]
  - Anxiety [Unknown]
  - Fear [Unknown]
  - Liver injury [Unknown]
  - Heart rate decreased [Unknown]
  - Acute kidney injury [Unknown]
  - Hallucination [Unknown]
  - Rash [Unknown]
  - Drug interaction [Unknown]
  - Hypothyroidism [Unknown]
  - Dysphagia [Unknown]
  - Dry mouth [Unknown]
  - Hypotension [Unknown]

NARRATIVE: CASE EVENT DATE: 20201122
